FAERS Safety Report 6985114-4 (Version None)
Quarter: 2010Q3

REPORT INFORMATION
  Report Type: 
  Country: None (occurrence: None)
  Receive Date: 20100915
  Receipt Date: 20100906
  Transmission Date: 20110219
  Serious: Yes (Hospitalization)
  Sender: FDA-Public Use
  Company Number: FR-ASTRAZENECA-2010SE42275

PATIENT
  Age: 902 Month
  Sex: Female

DRUGS (5)
  1. IRESSA [Suspect]
     Indication: BRONCHIAL CARCINOMA
     Route: 048
     Dates: start: 20100420, end: 20100817
  2. CRESTOR [Concomitant]
  3. KREDEX [Concomitant]
  4. KARDEGIC [Concomitant]
  5. PERINDOPRIL ERBUMINE [Concomitant]

REACTIONS (2)
  - BALANCE DISORDER [None]
  - SPEECH DISORDER [None]
